FAERS Safety Report 17865835 (Version 1)
Quarter: 2020Q2

REPORT INFORMATION
  Report Type: Spontaneous
  Country: US (occurrence: US)
  Receive Date: 20200605
  Receipt Date: 20200605
  Transmission Date: 20200714
  Serious: No
  Sender: FDA-Public Use
  Company Number: US-PFIZER INC-2020218755

PATIENT
  Age: 41 Year
  Sex: Female

DRUGS (11)
  1. GABAPENTIN. [Concomitant]
     Active Substance: GABAPENTIN
     Dosage: UNK
  2. BRAFTOVI [Suspect]
     Active Substance: ENCORAFENIB
     Indication: METASTASES TO SKIN
     Dosage: 450 MG, DAILY
     Route: 048
  3. MEKTOVI [Suspect]
     Active Substance: BINIMETINIB
     Indication: METASTASES TO SKIN
     Dosage: 45 MG, 2X/DAY (TWICE DAILY)
     Route: 048
  4. TAYTULLA [Concomitant]
     Active Substance: ETHINYL ESTRADIOL\NORETHINDRONE ACETATE
     Dosage: UNK
  5. CLONAZEPAM. [Concomitant]
     Active Substance: CLONAZEPAM
     Dosage: UNK
  6. MUPIROCIN. [Concomitant]
     Active Substance: MUPIROCIN
     Dosage: UNK
  7. LIDOCAIN [LIDOCAINE] [Concomitant]
     Active Substance: LIDOCAINE
     Dosage: UNK
  8. PRILOCAINE [Concomitant]
     Active Substance: PRILOCAINE
     Dosage: UNK
  9. TRAMADOL. [Concomitant]
     Active Substance: TRAMADOL
     Dosage: UNK
  10. ESCITALOPRAM [Concomitant]
     Active Substance: ESCITALOPRAM OXALATE
     Dosage: UNK
  11. CELECOXIB. [Concomitant]
     Active Substance: CELECOXIB
     Dosage: UNK

REACTIONS (4)
  - Vomiting [Unknown]
  - Paraesthesia [Unknown]
  - Nausea [Unknown]
  - Hypoaesthesia [Unknown]
